FAERS Safety Report 18734853 (Version 1)
Quarter: 2021Q1

REPORT INFORMATION
  Report Type: Spontaneous
  Country: US (occurrence: US)
  Receive Date: 20210113
  Receipt Date: 20210113
  Transmission Date: 20210419
  Serious: Yes (Other)
  Sender: FDA-Public Use
  Company Number: US-DRREDDYS-USA/USA/21/0131014

PATIENT
  Age: 27 Year
  Sex: Male

DRUGS (1)
  1. TACROLIMUS. [Suspect]
     Active Substance: TACROLIMUS
     Indication: IMMUNOSUPPRESSANT DRUG THERAPY

REACTIONS (7)
  - Myopathy [Unknown]
  - Muscle spasms [Unknown]
  - Cardiac tamponade [Unknown]
  - Shock [Unknown]
  - Hypercalcaemia [Unknown]
  - Pericardial effusion [Unknown]
  - Fungal skin infection [Unknown]
